FAERS Safety Report 8864702 (Version 1)
Quarter: 2012Q4

REPORT INFORMATION
  Report Type: 
  Country: US (occurrence: US)
  Receive Date: 20121024
  Receipt Date: 20121024
  Transmission Date: 20130627
  Serious: No
  Sender: FDA-Public Use
  Company Number: US-AMGEN-USASP2011069029

PATIENT
  Age: 59 Year
  Sex: Male

DRUGS (8)
  1. ENBREL [Suspect]
     Indication: PRODUCT USED FOR UNKNOWN INDICATION
     Dosage: 50 mg, qwk
     Route: 058
  2. METHOTREXATE [Concomitant]
     Dosage: 2.5 mg, UNK
  3. NIASPAN [Concomitant]
     Dosage: 750 mg, UNK
  4. PRAVASTATIN [Concomitant]
     Dosage: 20 mg, UNK
  5. FOLIC ACID [Concomitant]
     Dosage: 1 mg, UNK
  6. VERAPAMIL [Concomitant]
     Dosage: 120 mg, UNK
  7. LATANOPROST [Concomitant]
     Dosage: UNK
  8. LOSARTAN POTASSSIUM [Concomitant]
     Dosage: 25 mg, UNK

REACTIONS (2)
  - Injection site swelling [Unknown]
  - Injection site discolouration [Unknown]
